FAERS Safety Report 16806070 (Version 2)
Quarter: 2019Q3

REPORT INFORMATION
  Report Type: Report from Study
  Country: TR (occurrence: TR)
  Receive Date: 20190913
  Receipt Date: 20190920
  Transmission Date: 20191005
  Serious: Yes (Death, Hospitalization)
  Sender: FDA-Public Use
  Company Number: TR-BAYER-2019-163492

PATIENT
  Sex: Male
  Weight: 79.6 kg

DRUGS (9)
  1. BENDAMUSTINE [Suspect]
     Active Substance: BENDAMUSTINE
     Indication: NON-HODGKIN^S LYMPHOMA
     Dosage: 90MG
     Route: 042
     Dates: start: 20190716, end: 20190716
  2. HIRUDOID [Concomitant]
     Active Substance: GLYCOSAMINOGLYCANS
     Indication: CONTUSION
     Dosage: 3X1
     Route: 061
     Dates: start: 20020729, end: 20190816
  3. EVASIF [Concomitant]
     Indication: HEPATITIS B
     Dosage: 245MG 1X1
     Route: 048
     Dates: start: 20190906
  4. COPANLISIB. [Suspect]
     Active Substance: COPANLISIB
     Indication: NON-HODGKIN^S LYMPHOMA
     Dosage: 60 MG
     Route: 042
     Dates: start: 20190716, end: 20190716
  5. COPANLISIB. [Suspect]
     Active Substance: COPANLISIB
     Indication: NON-HODGKIN^S LYMPHOMA
     Dosage: 60 MG
     Route: 042
     Dates: start: 20190730, end: 20190730
  6. RITUXIMAB. [Suspect]
     Active Substance: RITUXIMAB
     Indication: NON-HODGKIN^S LYMPHOMA
     Dosage: 375MG
     Route: 042
     Dates: start: 20190716, end: 20190716
  7. BENDAMUSTINE [Suspect]
     Active Substance: BENDAMUSTINE
     Indication: NON-HODGKIN^S LYMPHOMA
     Dosage: 90MG
     Route: 042
     Dates: start: 20190717, end: 20190717
  8. COPANLISIB. [Suspect]
     Active Substance: COPANLISIB
     Indication: NON-HODGKIN^S LYMPHOMA
     Dosage: 60 MG
     Route: 042
     Dates: start: 20190724, end: 20190724
  9. VIREAD [Concomitant]
     Active Substance: TENOFOVIR DISOPROXIL FUMARATE
     Indication: HEPATITIS B
     Dosage: 245 MG 1X1
     Route: 048
     Dates: start: 2013

REACTIONS (3)
  - Platelet count decreased [Not Recovered/Not Resolved]
  - Stevens-Johnson syndrome [Fatal]
  - Febrile neutropenia [Not Recovered/Not Resolved]

NARRATIVE: CASE EVENT DATE: 20190902
